FAERS Safety Report 12827184 (Version 10)
Quarter: 2018Q4

REPORT INFORMATION
  Report Type: Report from Study
  Country: None (occurrence: BE)
  Receive Date: 20161006
  Receipt Date: 20181107
  Transmission Date: 20190204
  Serious: Yes (Hospitalization)
  Sender: FDA-Public Use
  Company Number: BE-ABBVIE-14P-013-1271464-00

PATIENT
  Age: 71 Year
  Sex: Female

DRUGS (25)
  1. DUODOPA [Suspect]
     Active Substance: CARBIDOPA\LEVODOPA
     Dosage: AM= 7.9 ML; CD= 4.0 ML/H DURING 16 HRS; ED = 2.5 ML
     Route: 050
     Dates: start: 20160317, end: 20160501
  2. DUODOPA [Suspect]
     Active Substance: CARBIDOPA\LEVODOPA
     Dosage: AM= 7.9 ML; CD= 4.2 ML/H DURING 16 HRS; ED= 2.5 ML
     Route: 050
     Dates: start: 20160501, end: 20160504
  3. DUODOPA [Suspect]
     Active Substance: CARBIDOPA\LEVODOPA
     Dosage: MD=7.4ML?CD=4ML/HR DURING 16HRS?ED=2.5ML
     Route: 050
     Dates: start: 20180604, end: 20181029
  4. DUODOPA [Suspect]
     Active Substance: CARBIDOPA\LEVODOPA
     Dosage: AM=7.7ML; CD=3.9ML/HR DURING 16HRS; ED=2.5ML
     Route: 050
     Dates: start: 20151125, end: 20160317
  5. DUODOPA [Suspect]
     Active Substance: CARBIDOPA\LEVODOPA
     Dosage: MD=7.6ML?CD=4ML/HR DURING 16HRS?ED=2.5ML
     Route: 050
     Dates: start: 20180531, end: 20180604
  6. DUODOPA [Suspect]
     Active Substance: CARBIDOPA\LEVODOPA
     Dosage: MD=7.4ML?CD=4.2 ML/HR DURING 16HRS?ED=2.5ML
     Route: 050
     Dates: start: 20181029
  7. DUODOPA [Suspect]
     Active Substance: CARBIDOPA\LEVODOPA
     Indication: PARKINSON^S DISEASE
     Dosage: AM DOSE=10ML, CD=2.8ML/H FOR 16HRS AND ED=2ML
     Route: 050
     Dates: start: 20110426, end: 20140429
  8. DUODOPA [Suspect]
     Active Substance: CARBIDOPA\LEVODOPA
     Dosage: AM = 7.7 ML, ED = 3.6 ML/H DURING 16H, ED = 2.2 ML
     Route: 050
     Dates: start: 20150713, end: 20151007
  9. DUODOPA [Suspect]
     Active Substance: CARBIDOPA\LEVODOPA
     Dosage: AM DOSE=7.3ML, CD=3.6ML/H FOR 16HRS, ED=2.5ML
     Route: 050
     Dates: start: 20151007, end: 20151013
  10. DUODOPA [Suspect]
     Active Substance: CARBIDOPA\LEVODOPA
     Dosage: AM= 7.9 ML; CD= 4,1 ML/H DURING 16 HRS; ED= 2.5 ML
     Route: 050
     Dates: start: 20160504, end: 20160610
  11. DUODOPA [Suspect]
     Active Substance: CARBIDOPA\LEVODOPA
     Dosage: AM DOSE=7.6ML, CD=2.8ML/H FOR 16HRS AND ED=0.8ML
     Route: 050
     Dates: start: 20140618, end: 20140812
  12. DUODOPA [Suspect]
     Active Substance: CARBIDOPA\LEVODOPA
     Dosage: AM = 7.6 ML, CONTIN DOSE = 3.2 ML/H DURING 16H, EXTRA DOSE =0.8 ML
     Route: 050
     Dates: start: 20140812, end: 20140922
  13. DUODOPA [Suspect]
     Active Substance: CARBIDOPA\LEVODOPA
     Dosage: AM= 7.9 ML; CD= 4.4 ML/H DURING 16 HRS; ED= 2.5 ML
     Route: 050
     Dates: start: 20161209, end: 20170207
  14. DUODOPA [Suspect]
     Active Substance: CARBIDOPA\LEVODOPA
     Dosage: AM=7.7ML; CD=3.9ML/HR DURING 16HRS; ED=2.5ML
     Route: 050
     Dates: start: 20151014, end: 20151125
  15. DUODOPA [Suspect]
     Active Substance: CARBIDOPA\LEVODOPA
     Dosage: AM= 7.9 ML; CD= 3.8 ML/H DURING 16 HRS; ED= 2.5 ML
     Route: 050
     Dates: start: 20170207, end: 20180108
  16. STALEVO [Concomitant]
     Active Substance: CARBIDOPA\ENTACAPONE\LEVODOPA
     Indication: PARKINSON^S DISEASE
     Dosage: FORM STRENGTH: 200MG/50MG/200MG: UNIT DOSE: 1 TABLET AT NIGHT
  17. XADAGO [Concomitant]
     Active Substance: SAFINAMIDE MESYLATE
     Indication: PRODUCT USED FOR UNKNOWN INDICATION
     Dates: end: 201701
  18. DUODOPA [Suspect]
     Active Substance: CARBIDOPA\LEVODOPA
     Dosage: AM DOSE= 7.7ML, CONTIN DOSE= 3.2ML/H DURING 16HRS, EXTRA DOSE=
     Route: 050
     Dates: start: 20141031, end: 20150216
  19. DUODOPA [Suspect]
     Active Substance: CARBIDOPA\LEVODOPA
     Dosage: MD: 7.6 ML?CD: 4.1 ML/HR DURING 16 HRS?ED:2.5 ML
     Route: 050
     Dates: start: 20180108, end: 20180531
  20. DUODOPA [Suspect]
     Active Substance: CARBIDOPA\LEVODOPA
     Dosage: DOSGAGE CONTINUOSLY MONITORED AND ADJUSTED
     Route: 050
     Dates: start: 20140429, end: 20140618
  21. DUODOPA [Suspect]
     Active Substance: CARBIDOPA\LEVODOPA
     Dosage: AM= 7.9 ML; CD= 4.2 ML/H DURING 16 HRS; ED= 2.5 ML
     Route: 050
     Dates: start: 20160610, end: 20161209
  22. APOMORPHINE [Suspect]
     Active Substance: APOMORPHINE
     Indication: PRODUCT USED FOR UNKNOWN INDICATION
     Route: 065
     Dates: start: 201609, end: 201609
  23. DUODOPA [Suspect]
     Active Substance: CARBIDOPA\LEVODOPA
     Dosage: AM = 7.7 ML, CONTIN DOSE = 3.2 ML/H DURING 16H, EXTRA DOSE 0.8
     Route: 050
     Dates: start: 20140922, end: 20141031
  24. DUODOPA [Suspect]
     Active Substance: CARBIDOPA\LEVODOPA
     Dosage: AM DOSE=7.7ML, CD=3.3ML/H FOR 16HRS AND ED=2.2ML
     Route: 050
     Dates: start: 20150216, end: 20150713
  25. DUODOPA [Suspect]
     Active Substance: CARBIDOPA\LEVODOPA
     Dosage: AM DOSE=7.7ML, CD=3.7ML/H FOR 16HRS AND ED=2.5ML
     Route: 050
     Dates: start: 20151013, end: 20151014

REACTIONS (17)
  - Stress [Not Recovered/Not Resolved]
  - Emotional distress [Recovering/Resolving]
  - Fall [Unknown]
  - Fear [Unknown]
  - Dyskinesia [Recovered/Resolved]
  - Stoma site discharge [Unknown]
  - Anxiety [Not Recovered/Not Resolved]
  - Dyskinesia [Not Recovered/Not Resolved]
  - Excessive granulation tissue [Not Recovered/Not Resolved]
  - On and off phenomenon [Not Recovered/Not Resolved]
  - Device use error [Unknown]
  - On and off phenomenon [Recovered/Resolved]
  - Stoma site hypergranulation [Recovered/Resolved]
  - Stoma site erythema [Unknown]
  - Drug ineffective [Unknown]
  - Drug ineffective [Unknown]
  - Loss of personal independence in daily activities [Recovering/Resolving]

NARRATIVE: CASE EVENT DATE: 201609
